FAERS Safety Report 11491889 (Version 1)
Quarter: 2015Q3

REPORT INFORMATION
  Report Type: Spontaneous
  Country: US (occurrence: None)
  Receive Date: 20150910
  Receipt Date: 20150910
  Transmission Date: 20151125
  Serious: No
  Sender: FDA-Public Use
  Company Number: None

PATIENT
  Age: 34 Year
  Sex: Male

DRUGS (1)
  1. EQUATE BEAUTY ^BREAKOUT CONTROL ACNE CLEANSER^ [Suspect]
     Active Substance: BENZOYL PEROXIDE

REACTIONS (2)
  - Eye irritation [None]
  - Product quality issue [None]

NARRATIVE: CASE EVENT DATE: 20150723
